FAERS Safety Report 4439343-4 (Version None)
Quarter: 2004Q3

REPORT INFORMATION
  Report Type: 
  Country: None (occurrence: None)
  Receive Date: 20040728
  Receipt Date: 20040423
  Transmission Date: 20050211
  Serious: No
  Sender: FDA-Public Use
  Company Number: USA040465887

PATIENT
  Age: 38 Year
  Sex: Female

DRUGS (3)
  1. STRATTERA [Suspect]
     Indication: MEMORY IMPAIRMENT
     Dosage: 40 MG DAY
     Dates: start: 20040422
  2. ALBUTEROL [Concomitant]
  3. ALLEGRA-D [Concomitant]

REACTIONS (4)
  - HEADACHE [None]
  - HYPERHIDROSIS [None]
  - INSOMNIA [None]
  - PARAESTHESIA [None]
